FAERS Safety Report 6778990-1 (Version None)
Quarter: 2010Q2

REPORT INFORMATION
  Report Type: 
  Country: None (occurrence: None)
  Receive Date: 20100618
  Receipt Date: 20100525
  Transmission Date: 20101027
  Serious: Yes (Death)
  Sender: FDA-Public Use
  Company Number: US-ASTRAZENECA-2004UW19212

PATIENT
  Age: 54 Year
  Sex: Female

DRUGS (9)
  1. SEROQUEL [Suspect]
     Indication: MAJOR DEPRESSION
     Route: 048
  2. SEROQUEL [Suspect]
     Indication: AFFECTIVE DISORDER
     Route: 048
  3. SEROQUEL [Suspect]
     Dosage: 200 MG Q AM, 400 MG QHS
     Route: 048
     Dates: end: 20040110
  4. SEROQUEL [Suspect]
     Dosage: 200 MG Q AM, 400 MG QHS
     Route: 048
     Dates: end: 20040110
  5. CELEXA [Concomitant]
     Indication: DEPRESSION
     Route: 048
  6. WELLBUTRIN [Concomitant]
     Indication: DEPRESSION
     Route: 048
  7. NEURONTIN [Concomitant]
  8. VISTARIL [Concomitant]
     Indication: ANXIETY
  9. ARTHROTEC [Concomitant]
     Route: 048

REACTIONS (2)
  - COMPLETED SUICIDE [None]
  - INTENTIONAL OVERDOSE [None]
